FAERS Safety Report 6593051-2 (Version None)
Quarter: 2010Q1

REPORT INFORMATION
  Report Type: 
  Country: None (occurrence: None)
  Receive Date: 20100218
  Receipt Date: 20100218
  Transmission Date: 20100710
  Serious: Yes (Hospitalization)
  Sender: FDA-Public Use
  Company Number: None

PATIENT
  Age: 59 Year
  Sex: Male

DRUGS (2)
  1. HYDROCODONE BITARTRATE AND ACETAMINOPHEN [Suspect]
     Indication: PROCEDURAL PAIN
     Dosage: 7.5/500 MG PRN PO
     Route: 048
     Dates: start: 20091005, end: 20091021
  2. HYDROCODONE BITARTRATE AND ACETAMINOPHEN [Suspect]
     Indication: TOOTHACHE
     Dosage: 7.5/500 MG PRN PO
     Route: 048
     Dates: start: 20091005, end: 20091021

REACTIONS (1)
  - LETHARGY [None]
